FAERS Safety Report 8976727 (Version 1)
Quarter: 2012Q4

REPORT INFORMATION
  Report Type: Report from Study
  Country: DE (occurrence: DE)
  Receive Date: 20121220
  Receipt Date: 20121220
  Transmission Date: 20130627
  Serious: Yes (Death, Hospitalization, Other)
  Sender: FDA-Public Use
  Company Number: DE-BRISTOL-MYERS SQUIBB COMPANY-17199886

PATIENT
  Age: 70 Year
  Sex: Male
  Weight: 83.9 kg

DRUGS (15)
  1. CISPLATIN [Suspect]
     Indication: NON-SMALL CELL LUNG CANCER
     Dosage: recent dose 15Dec10
     Route: 042
     Dates: start: 20100929
  2. PEMETREXED DISODIUM [Suspect]
     Indication: NON-SMALL CELL LUNG CANCER
     Dosage: recent dose 15Dec10
     Route: 042
     Dates: start: 20100929
  3. METOPROLOL [Concomitant]
     Dates: start: 2008
  4. RAMIPRIL [Concomitant]
     Dates: start: 2008
  5. SIMVASTATIN [Concomitant]
     Dates: start: 2008
  6. MOLSIDOMINE [Concomitant]
     Dates: start: 2008
  7. HYDROCHLOROTHIAZIDE [Concomitant]
     Dates: start: 2008
  8. TRAMADOL [Concomitant]
     Dates: start: 20100928
  9. DICLOFENAC [Concomitant]
     Dates: start: 201008
  10. METAMIZOL [Concomitant]
     Dates: start: 201008
  11. ZOLPIDEM TARTRATE [Concomitant]
     Dates: start: 20101020
  12. ACETYLSALICYLIC ACID [Concomitant]
     Dates: start: 20101021
  13. MACROGOL [Concomitant]
     Dates: start: 201012
  14. CALCIUM CARBONATE [Concomitant]
     Dates: start: 20101214
  15. MAGNESIUM SULFATE [Concomitant]
     Dates: start: 20101224

REACTIONS (8)
  - Malignant neoplasm progression [Fatal]
  - Pulmonary embolism [Fatal]
  - Circulatory collapse [Unknown]
  - Hyponatraemia [Recovering/Resolving]
  - Thrombocytopenia [Recovered/Resolved]
  - Leukopenia [Recovered/Resolved]
  - Flank pain [Unknown]
  - Acetabulum fracture [Unknown]
